FAERS Safety Report 4781265-3 (Version None)
Quarter: 2005Q3

REPORT INFORMATION
  Report Type: 
  Country: None (occurrence: None)
  Receive Date: 20050928
  Receipt Date: 20050901
  Transmission Date: 20060218
  Serious: Yes (Hospitalization)
  Sender: FDA-Public Use
  Company Number: IT-GLAXOSMITHKLINE-B0393154A

PATIENT
  Age: 60 Year
  Sex: Female

DRUGS (3)
  1. AUGMENTIN [Suspect]
     Dosage: 2UNIT PER DAY
     Dates: start: 20050815, end: 20050821
  2. ATENOLOL [Concomitant]
     Indication: ARRHYTHMIA
     Dosage: 100MG PER DAY
     Route: 048
  3. LEVOTHYROXINE SODIUM [Concomitant]
     Indication: HYPOTHYROIDISM
     Dosage: 125U PER DAY
     Route: 048

REACTIONS (3)
  - PRURITUS [None]
  - RASH MACULO-PAPULAR [None]
  - SKIN LESION [None]
